FAERS Safety Report 5286529-5 (Version None)
Quarter: 2007Q2

REPORT INFORMATION
  Report Type: 
  Country: None (occurrence: None)
  Receive Date: 20070404
  Receipt Date: 20070312
  Transmission Date: 20071010
  Serious: Yes (Other)
  Sender: FDA-Public Use
  Company Number: US-SANOFI-SYNTHELABO-A03200702386

PATIENT
  Sex: Female
  Weight: 97.5 kg

DRUGS (5)
  1. ZOLOFT [Concomitant]
     Indication: DEPRESSION
     Route: 065
  2. BUSPAR [Concomitant]
     Indication: DEPRESSION
     Route: 065
  3. HYDROCHLOROTHIAZIDE [Concomitant]
     Indication: HYPERTENSION
     Route: 065
  4. MONOPRIL [Concomitant]
     Indication: HYPERTENSION
     Route: 065
  5. AMBIEN [Suspect]
     Indication: INSOMNIA
     Route: 048
     Dates: start: 19990101, end: 20060301

REACTIONS (11)
  - AMNESIA [None]
  - BALANCE DISORDER [None]
  - BLOOD PRESSURE INCREASED [None]
  - CHEST PAIN [None]
  - DYSPNOEA [None]
  - EATING DISORDER [None]
  - FALL [None]
  - SLEEP TALKING [None]
  - SLEEP WALKING [None]
  - TRANCE [None]
  - WEIGHT INCREASED [None]
